FAERS Safety Report 6678528-3 (Version None)
Quarter: 2010Q2

REPORT INFORMATION
  Report Type: 
  Country: None (occurrence: None)
  Receive Date: 20100413
  Receipt Date: 20100120
  Transmission Date: 20101027
  Serious: No
  Sender: FDA-Public Use
  Company Number: 2010BI002412

PATIENT
  Age: 36 Year
  Sex: Male

DRUGS (2)
  1. TYSABRI [Suspect]
     Indication: MULTIPLE SCLEROSIS
     Route: 042
     Dates: start: 20071218, end: 20090924
  2. NOVANTRONE [Concomitant]
     Dates: start: 20090101

REACTIONS (1)
  - HYPERSENSITIVITY [None]
